FAERS Safety Report 13073808 (Version 2)
Quarter: 2017Q1

REPORT INFORMATION
  Report Type: Spontaneous
  Country: NL (occurrence: NL)
  Receive Date: 20161229
  Receipt Date: 20170324
  Transmission Date: 20170428
  Serious: Yes (Other)
  Sender: FDA-Public Use
  Company Number: NL-MYLANLABS-2016M1052637

PATIENT

DRUGS (4)
  1. METHYLFENIDAAT HCL MYLAN RETARD 36 MG, TABLETTEN MET VERLENGDE AFGIFTE [Suspect]
     Active Substance: METHYLPHENIDATE HYDROCHLORIDE
     Indication: ATTENTION DEFICIT/HYPERACTIVITY DISORDER
     Dosage: UNK
     Route: 048
     Dates: start: 2014
  2. METHYLFENIDAAT HCL MYLAN RETARD 36 MG, TABLETTEN MET VERLENGDE AFGIFTE [Suspect]
     Active Substance: METHYLPHENIDATE HYDROCHLORIDE
     Dosage: 1X PER DAG 1 TABLET VAN 36MG RETARD - MYLAN
     Route: 048
     Dates: start: 20161103, end: 20161109
  3. FOLIUMZUUR [Concomitant]
     Active Substance: FOLIC ACID
     Indication: PRODUCT USED FOR UNKNOWN INDICATION
     Dosage: 1 TABLET OP WOENSDAG
     Route: 048
  4. OLANZAPINE. [Concomitant]
     Active Substance: OLANZAPINE
     Indication: PRODUCT USED FOR UNKNOWN INDICATION
     Dosage: 1DD1
     Route: 048

REACTIONS (3)
  - Product substitution issue [Unknown]
  - Therapeutic response unexpected [Recovered/Resolved]
  - Drug ineffective [Recovered/Resolved]

NARRATIVE: CASE EVENT DATE: 20161103
